FAERS Safety Report 20008595 (Version 1)
Quarter: 2021Q4

REPORT INFORMATION
  Report Type: Report from Study
  Country: US (occurrence: US)
  Receive Date: 20211028
  Receipt Date: 20211028
  Transmission Date: 20220304
  Serious: Yes (Other)
  Sender: FDA-Public Use
  Company Number: US-TAKEDA-US201610702

PATIENT
  Age: 34 Year
  Sex: Female

DRUGS (10)
  1. PARATHYROID HORMONE [Suspect]
     Active Substance: PARATHYROID HORMONE
     Indication: Hypoparathyroidism
     Dosage: 75 ?G, UNKNOWN
     Route: 058
     Dates: start: 20160413
  2. PARATHYROID HORMONE [Suspect]
     Active Substance: PARATHYROID HORMONE
     Indication: Hypoparathyroidism
     Dosage: 75 ?G, UNKNOWN
     Route: 058
     Dates: start: 20160413
  3. PARATHYROID HORMONE [Suspect]
     Active Substance: PARATHYROID HORMONE
     Indication: Hypoparathyroidism
     Dosage: 75 ?G, UNKNOWN
     Route: 058
     Dates: start: 20160413
  4. PARATHYROID HORMONE [Suspect]
     Active Substance: PARATHYROID HORMONE
     Indication: Post procedural hypothyroidism
     Dosage: 100 MICROGRAM, QD
     Route: 065
  5. PARATHYROID HORMONE [Suspect]
     Active Substance: PARATHYROID HORMONE
     Indication: Post procedural hypothyroidism
     Dosage: 100 MICROGRAM, QD
     Route: 065
  6. PARATHYROID HORMONE [Suspect]
     Active Substance: PARATHYROID HORMONE
     Indication: Post procedural hypothyroidism
     Dosage: 100 MICROGRAM, QD
     Route: 065
  7. CALCIUM [Suspect]
     Active Substance: CALCIUM
     Indication: Hypoparathyroidism
     Dosage: 300 TO 400 MILLIGRAM, DAILY
     Route: 065
  8. CALCIUM CARBONATE\ERGOCALCIFEROL\RETINOL [Suspect]
     Active Substance: CALCIUM CARBONATE\ERGOCALCIFEROL\RETINOL
     Indication: Hypoparathyroidism
     Dosage: 1 MILLIGRAM, QD
     Route: 065
  9. VITAMIN D3 [Suspect]
     Active Substance: CHOLECALCIFEROL
     Indication: Hypoparathyroidism
     Dosage: 5000 INTERNATIONAL UNIT, QD
     Route: 065
  10. SYNTHROID [Suspect]
     Active Substance: LEVOTHYROXINE SODIUM
     Indication: Papillary thyroid cancer
     Dosage: 900 MICROGRAM, QD
     Route: 065

REACTIONS (4)
  - Thyroid function test abnormal [Unknown]
  - Drug interaction [Unknown]
  - Product dose omission issue [Not Recovered/Not Resolved]
  - Product storage error [Unknown]

NARRATIVE: CASE EVENT DATE: 20160817
